FAERS Safety Report 8220772-8 (Version None)
Quarter: 2012Q1

REPORT INFORMATION
  Report Type: 
  Country: None (occurrence: None)
  Receive Date: 20120320
  Receipt Date: 20120308
  Transmission Date: 20120608
  Serious: Yes (Hospitalization)
  Sender: FDA-Public Use
  Company Number: US-MYLANLABS-2012S1005150

PATIENT
  Age: 33 Year
  Sex: Female

DRUGS (2)
  1. DIAZEPAM [Suspect]
     Indication: AGITATION
     Route: 048
     Dates: start: 20120229, end: 20120229
  2. RISPERIDONE [Suspect]
     Indication: PSYCHOTIC DISORDER
     Route: 048
     Dates: start: 20120229, end: 20120229

REACTIONS (8)
  - HYPERSENSITIVITY [None]
  - APHASIA [None]
  - DROOLING [None]
  - BLOOD PRESSURE INCREASED [None]
  - HEART RATE INCREASED [None]
  - DYSKINESIA [None]
  - MASKED FACIES [None]
  - DYSTONIA [None]
